FAERS Safety Report 20499623 (Version 6)
Quarter: 2023Q1

REPORT INFORMATION
  Report Type: Report from Study
  Country: JP (occurrence: JP)
  Receive Date: 20220222
  Receipt Date: 20230301
  Transmission Date: 20230417
  Serious: Yes (Other)
  Sender: FDA-Public Use
  Company Number: JP-ASTELLAS-2022JP002464

PATIENT
  Age: 77 Year
  Sex: Female
  Weight: 60.5 kg

DRUGS (6)
  1. ENFORTUMAB VEDOTIN [Suspect]
     Active Substance: ENFORTUMAB VEDOTIN
     Indication: Ureteric cancer
     Dosage: 1.25 MG/KG, ONCE WEEKLY IN 3 CONSECUTIVE WEEKS, THEN INTERRUPTED IN THE 4TH WEEK
     Route: 041
     Dates: start: 20220118, end: 20220201
  2. WHITE PETROLATUM [Concomitant]
     Active Substance: PETROLATUM
     Indication: Skin discolouration
     Dosage: UNK UNK, UNKNOWN FREQ.
     Route: 065
     Dates: start: 20220201, end: 20220201
  3. WHITE PETROLATUM [Concomitant]
     Active Substance: PETROLATUM
     Indication: Pruritus
  4. UREA [Concomitant]
     Active Substance: UREA
     Indication: Skin discolouration
     Dosage: UNK UNK, UNKNOWN FREQ.
     Route: 065
     Dates: start: 20220215, end: 20220215
  5. UREA [Concomitant]
     Active Substance: UREA
     Indication: Pruritus
  6. Oronine [Concomitant]
     Indication: Pruritus
     Dosage: UNK UNK, UNKNOWN FREQ.
     Route: 065

REACTIONS (7)
  - Neutropenia [Recovered/Resolved]
  - Taste disorder [Recovered/Resolved]
  - Rash [Recovering/Resolving]
  - Skin discolouration [Recovered/Resolved]
  - Pruritus [Recovered/Resolved]
  - Neutrophil count decreased [Recovered/Resolved]
  - Alopecia [Recovered/Resolved]

NARRATIVE: CASE EVENT DATE: 20220101
